FAERS Safety Report 7047228-2 (Version None)
Quarter: 2010Q4

REPORT INFORMATION
  Report Type: 
  Country: None (occurrence: None)
  Receive Date: 20101015
  Receipt Date: 20101006
  Transmission Date: 20110411
  Serious: Yes (Death)
  Sender: FDA-Public Use
  Company Number: JP-ELI_LILLY_AND_COMPANY-JP201009001081

PATIENT
  Age: 49 Year
  Sex: Male
  Weight: 63 kg

DRUGS (9)
  1. TADALAFIL [Suspect]
     Indication: PULMONARY ARTERIAL HYPERTENSION
     Dosage: 40 MG, DAILY (1/D)
     Route: 048
     Dates: start: 20100511, end: 20100730
  2. LASIX [Concomitant]
     Indication: PULMONARY ARTERIAL HYPERTENSION
     Dosage: 20 MG, DAILY (1/D)
     Route: 048
     Dates: start: 20091130, end: 20100811
  3. ALDACTONE [Concomitant]
     Indication: PULMONARY ARTERIAL HYPERTENSION
     Dosage: 50 MG, DAILY (1/D)
     Route: 048
     Dates: start: 20091130, end: 20100811
  4. ARTIST [Concomitant]
     Indication: PULMONARY ARTERIAL HYPERTENSION
     Dosage: 10 MG, DAILY (1/D)
     Route: 048
     Dates: start: 20091130, end: 20100811
  5. WARFARIN SODIUM [Concomitant]
     Indication: ATRIAL FIBRILLATION
     Dosage: 3 MG, DAILY (1/D)
     Route: 048
     Dates: start: 20091130, end: 20100811
  6. PROTECADIN /JPN/ [Concomitant]
     Dosage: 10 MG, DAILY (1/D)
     Route: 048
     Dates: start: 20091130, end: 20100811
  7. NEUQUINON [Concomitant]
     Dosage: 30 MG, DAILY (1/D)
     Route: 048
     Dates: start: 20091130, end: 20100702
  8. MAGMITT [Concomitant]
     Indication: CONSTIPATION
     Dosage: 0.99 G, DAILY (1/D)
     Route: 048
     Dates: start: 20091130, end: 20100811
  9. BENZALIN [Concomitant]
     Indication: INSOMNIA
     Dosage: 5 MG, DAILY (1/D)
     Route: 048
     Dates: start: 20091130, end: 20100811

REACTIONS (1)
  - DEATH [None]
